FAERS Safety Report 13523377 (Version 3)
Quarter: 2017Q3

REPORT INFORMATION
  Report Type: Spontaneous
  Country: US (occurrence: US)
  Receive Date: 20170508
  Receipt Date: 20170706
  Transmission Date: 20171127
  Serious: Yes (Other)
  Sender: FDA-Public Use
  Company Number: US-VIFOR (INTERNATIONAL) INC.-VIT-2017-03173

PATIENT
  Age: 75 Year
  Sex: Female
  Weight: 54.48 kg

DRUGS (17)
  1. VELTASSA [Suspect]
     Active Substance: PATIROMER
     Indication: HYPERKALAEMIA
     Route: 048
     Dates: start: 20161015
  2. VITAMIN E [Concomitant]
     Active Substance: .ALPHA.-TOCOPHEROL
     Route: 048
  3. NOVOLOG [Concomitant]
     Active Substance: INSULIN ASPART
     Dosage: 100 UNIT/ML
     Route: 058
  4. BONIVA [Concomitant]
     Active Substance: IBANDRONATE SODIUM
     Route: 048
  5. IRON [Concomitant]
     Active Substance: IRON
     Route: 048
  6. DILTIAZEM. [Concomitant]
     Active Substance: DILTIAZEM
     Route: 048
  7. LANTUS [Concomitant]
     Active Substance: INSULIN GLARGINE
     Route: 058
  8. VITAMIN B COMPLEX [Concomitant]
     Active Substance: CYANOCOBALAMIN\DEXPANTHENOL\NIACINAMIDE\PYRIDOXINE HYDROCHLORIDE\RIBOFLAVIN 5^-PHOSPHATE SODIUM\THIAMINE HYDROCHLORIDE\VITAMIN B COMPLEX
     Route: 048
  9. ARANESP [Concomitant]
     Active Substance: DARBEPOETIN ALFA
  10. CIPRO [Concomitant]
     Active Substance: CIPROFLOXACIN HYDROCHLORIDE
     Route: 048
     Dates: end: 20170204
  11. PLAVIX [Concomitant]
     Active Substance: CLOPIDOGREL BISULFATE
     Route: 048
  12. LOSARTAN POTASSIUM. [Concomitant]
     Active Substance: LOSARTAN POTASSIUM
     Dosage: 1/2 TABLET ORALLY ONCE A DAY
     Route: 048
  13. COLECALCIFEROL [Concomitant]
     Active Substance: CHOLECALCIFEROL
     Dosage: 2000 UNIT CAPSULEE
     Route: 048
  14. ARMOUR THYROID [Concomitant]
     Active Substance: THYROID, PORCINE
     Route: 048
  15. IBANDRONATE SODIUM. [Concomitant]
     Active Substance: IBANDRONATE SODIUM
     Route: 048
  16. METOPROLOL TARTRATE. [Concomitant]
     Active Substance: METOPROLOL TARTRATE
     Route: 048
  17. WELCHOL [Concomitant]
     Active Substance: COLESEVELAM HYDROCHLORIDE
     Dosage: 1 PACKET MIXED WITH WATER WITH A MEAL
     Route: 048

REACTIONS (3)
  - Pneumonia klebsiella [Unknown]
  - Loss of consciousness [Recovered/Resolved]
  - Urinary tract infection [Unknown]

NARRATIVE: CASE EVENT DATE: 201703
